FAERS Safety Report 7897483 (Version 7)
Quarter: 2013Q1

REPORT INFORMATION
  Report Type: Spontaneous
  Country: CA (occurrence: CA)
  Receive Date: 20110413
  Receipt Date: 20130322
  Transmission Date: 20140127
  Serious: Yes (Death, Other)
  Sender: FDA-Public Use
  Company Number: PHHY2011CA28239

PATIENT
  Sex: Male

DRUGS (11)
  1. EXJADE [Suspect]
     Indication: MYELODYSPLASTIC SYNDROME
     Dosage: 1000 MG, QD
     Route: 048
     Dates: start: 20110101
  2. EXJADE [Suspect]
     Dosage: 1750 MG, UNK
     Route: 048
  3. PREDNISONE [Concomitant]
     Indication: POLYCHONDRITIS
     Dosage: 10 MG, QD
  4. CIPRO [Concomitant]
     Dosage: 1 DF, QOD
  5. METOPROLOL [Concomitant]
     Indication: ATRIAL FIBRILLATION
     Dosage: 75 MG, BID
  6. PANTOPRAZOLE [Concomitant]
     Dosage: 40 MG, QD
  7. ACTONEL [Concomitant]
  8. CALCIUM [Concomitant]
  9. MULTIVITAMINS [Concomitant]
  10. VITAMIN D [Concomitant]
  11. ARICEPT [Concomitant]

REACTIONS (6)
  - Death [Fatal]
  - Ear neoplasm malignant [Unknown]
  - Haemoglobin decreased [Unknown]
  - Constipation [Unknown]
  - Gastrointestinal motility disorder [Unknown]
  - Dysgeusia [Unknown]
